FAERS Safety Report 14094287 (Version 2)
Quarter: 2017Q4

REPORT INFORMATION
  Report Type: Spontaneous
  Country: US (occurrence: US)
  Receive Date: 20171016
  Receipt Date: 20171016
  Transmission Date: 20180321
  Serious: Yes (Life-Threatening, Hospitalization)
  Sender: FDA-Public Use
  Company Number: US-SA-2017SA196731

PATIENT
  Sex: Male

DRUGS (3)
  1. UNISOM SLEEPTABS [Suspect]
     Active Substance: DOXYLAMINE SUCCINATE
     Dosage: CALLER INITIALLY STATED THIS WAS 50MG BUT SAID IT COULD BE 25MG
     Route: 064
     Dates: end: 20170305
  2. UNISOM SLEEPMINIS NIGHTTIME SLEEP-AID [Suspect]
     Active Substance: DIPHENHYDRAMINE HYDROCHLORIDE
     Route: 064
  3. UNISOM SLEEPTABS [Suspect]
     Active Substance: DOXYLAMINE SUCCINATE
     Dosage: CALLER INITIALLY STATED THIS WAS 50MG BUT SAID IT COULD BE 25MG
     Route: 064

REACTIONS (5)
  - Maternal drugs affecting foetus [None]
  - Apparent life threatening event [Recovered/Resolved]
  - Neonatal aspiration [Recovered/Resolved]
  - Neonatal respiratory distress syndrome [Recovered/Resolved]
  - Foetal exposure during pregnancy [Unknown]
